FAERS Safety Report 11595945 (Version 1)
Quarter: 2015Q4

REPORT INFORMATION
  Report Type: Spontaneous
  Country: US (occurrence: None)
  Receive Date: 20151005
  Receipt Date: 20151005
  Transmission Date: 20160304
  Serious: No
  Sender: FDA-Public Use
  Company Number: None

PATIENT
  Sex: Male

DRUGS (8)
  1. PREDNISONE 5MG ROXANE [Suspect]
     Active Substance: PREDNISONE
     Route: 048
  2. HYDROCO/APAP [Concomitant]
     Active Substance: ACETAMINOPHEN\HYDROCODONE
  3. OMEPRAZOLE. [Concomitant]
     Active Substance: OMEPRAZOLE
  4. ONDANSETRON [Concomitant]
     Active Substance: ONDANSETRON
  5. OXYMORPHONE [Concomitant]
     Active Substance: OXYMORPHONE
  6. ZYTIGA [Suspect]
     Active Substance: ABIRATERONE ACETATE
     Indication: PROSTATE CANCER
     Route: 048
  7. BICALUTAMIDE. [Concomitant]
     Active Substance: BICALUTAMIDE
  8. GEMFIBROZIL. [Concomitant]
     Active Substance: GEMFIBROZIL

REACTIONS (1)
  - Drug ineffective [None]
